FAERS Safety Report 6293419-8 (Version None)
Quarter: 2009Q3

REPORT INFORMATION
  Report Type: 
  Country: None (occurrence: None)
  Receive Date: 20090802
  Receipt Date: 20090728
  Transmission Date: 20100115
  Serious: Yes (Other)
  Sender: FDA-Public Use
  Company Number: GB-ALLERGAN-0903315US

PATIENT
  Age: 75 Year
  Sex: Male
  Weight: 75 kg

DRUGS (3)
  1. LUMIGAN [Suspect]
     Indication: DRUG USE FOR UNKNOWN INDICATION
     Dosage: 1 GTT, QPM
     Route: 047
     Dates: start: 20070815, end: 20090305
  2. COMBIGAN [Concomitant]
     Indication: GLAUCOMA
     Dosage: UNK, BID
     Dates: start: 20070815
  3. TRUSOPT [Concomitant]
     Indication: GLAUCOMA
     Dosage: UNK, BID
     Dates: start: 19960807

REACTIONS (1)
  - CHOROIDAL DETACHMENT [None]
